FAERS Safety Report 5412103-3 (Version None)
Quarter: 2007Q3

REPORT INFORMATION
  Report Type: 
  Country: None (occurrence: None)
  Receive Date: 20070813
  Receipt Date: 20070806
  Transmission Date: 20080115
  Serious: Yes (Other)
  Sender: FDA-Public Use
  Company Number: DK-AVENTIS-200717159GDDC

PATIENT
  Age: 52 Year
  Sex: Female

DRUGS (5)
  1. DESMOSPRAY                         /00361901/ [Suspect]
     Indication: NOCTURIA
     Route: 055
  2. COUGH AND COLD PREPARATIONS [Concomitant]
     Route: 048
  3. COUGH AND COLD PREPARATIONS [Concomitant]
     Route: 048
  4. COUGH AND COLD PREPARATIONS [Concomitant]
  5. COUGH AND COLD PREPARATIONS [Concomitant]

REACTIONS (2)
  - DRUG INTERACTION [None]
  - HYPONATRAEMIA [None]
